FAERS Safety Report 17191611 (Version 2)
Quarter: 2019Q4

REPORT INFORMATION
  Report Type: Spontaneous
  Country: US (occurrence: US)
  Receive Date: 20191223
  Receipt Date: 20191227
  Transmission Date: 20200122
  Serious: No
  Sender: FDA-Public Use
  Company Number: US-HORIZON-PEN-1037-2019

PATIENT
  Age: 84 Year
  Sex: Male

DRUGS (2)
  1. ULTRA BENGAY [Concomitant]
     Indication: MENISCUS INJURY
  2. PENNSAID [Suspect]
     Active Substance: DICLOFENAC SODIUM
     Indication: MENISCUS INJURY
     Dosage: AS NEEDED
     Dates: start: 2019

REACTIONS (4)
  - Drug ineffective for unapproved indication [Unknown]
  - Off label use [Unknown]
  - Drug ineffective [Unknown]
  - Expired product administered [Unknown]
